FAERS Safety Report 23464839 (Version 1)
Quarter: 2024Q1

REPORT INFORMATION
  Report Type: Spontaneous
  Country: FR (occurrence: FR)
  Receive Date: 20240201
  Receipt Date: 20240201
  Transmission Date: 20240409
  Serious: Yes (Other)
  Sender: FDA-Public Use
  Company Number: FR-SUN PHARMACEUTICAL INDUSTRIES LTD-2024RR-429496

PATIENT
  Age: 43 Year
  Sex: Male

DRUGS (3)
  1. OLANZAPINE [Suspect]
     Active Substance: OLANZAPINE
     Indication: Product used for unknown indication
     Dosage: 5 MG/DAY
     Route: 048
     Dates: start: 2021
  2. LORAZEPAM [Suspect]
     Active Substance: LORAZEPAM
     Indication: Product used for unknown indication
     Dosage: 3.75 MG/DAY
     Route: 048
     Dates: start: 2019
  3. TRAMADOL [Suspect]
     Active Substance: TRAMADOL\TRAMADOL HYDROCHLORIDE
     Indication: Product used for unknown indication
     Dosage: 300 MG/DAY
     Route: 048
     Dates: start: 2016

REACTIONS (2)
  - Drug dependence [Not Recovered/Not Resolved]
  - Drug use disorder [Not Recovered/Not Resolved]
